FAERS Safety Report 8902575 (Version 7)
Quarter: 2013Q2

REPORT INFORMATION
  Report Type: Spontaneous
  Country: US (occurrence: US)
  Receive Date: 20121112
  Receipt Date: 20130412
  Transmission Date: 20140414
  Serious: Yes (Hospitalization, Disabling, Other)
  Sender: FDA-Public Use
  Company Number: US-009507513-1211USA004333

PATIENT
  Sex: Female
  Weight: 50.34 kg

DRUGS (3)
  1. FOSAMAX [Suspect]
     Indication: OSTEOPOROSIS
     Dosage: 10 MG, QD
     Route: 048
     Dates: start: 20000801, end: 20020915
  2. FOSAMAX [Suspect]
     Dosage: 70 MG, UNK
     Route: 048
     Dates: start: 20030523, end: 20030821
  3. ESTROGENS (UNSPECIFIED) [Concomitant]
     Indication: OESTROGEN DEFICIENCY
     Dosage: UNK
     Dates: start: 1998

REACTIONS (64)
  - Open reduction of fracture [Not Recovered/Not Resolved]
  - Bladder repair [Unknown]
  - Sepsis [Unknown]
  - Tachycardia [Unknown]
  - Hypovolaemia [Unknown]
  - Electrolyte imbalance [Unknown]
  - Haemorrhagic anaemia [Unknown]
  - Renal failure acute [Unknown]
  - Incision site haematoma [Unknown]
  - Gastrointestinal haemorrhage [Unknown]
  - Fall [Unknown]
  - Spinal fusion surgery [Unknown]
  - Femur fracture [Not Recovered/Not Resolved]
  - Depression [Not Recovered/Not Resolved]
  - Anxiety [Not Recovered/Not Resolved]
  - Bone loss [Unknown]
  - Loose tooth [Unknown]
  - Tooth extraction [Unknown]
  - Tooth extraction [Unknown]
  - Endodontic procedure [Unknown]
  - Medical device removal [Unknown]
  - Fracture nonunion [Not Recovered/Not Resolved]
  - Wrist fracture [Unknown]
  - Fall [Unknown]
  - Vitamin D deficiency [Unknown]
  - Calcium deficiency [Unknown]
  - Seasonal allergy [Unknown]
  - Urinary tract infection [Unknown]
  - Neuralgia [Unknown]
  - Urinary tract disorder [Unknown]
  - Dysuria [Unknown]
  - Hypertonic bladder [Unknown]
  - Thermal burn [Unknown]
  - Osteoarthritis [Unknown]
  - Dysuria [Unknown]
  - Rosacea [Unknown]
  - Oedema [Unknown]
  - Raynaud^s phenomenon [Unknown]
  - Small intestinal obstruction [Unknown]
  - Dry mouth [Unknown]
  - Sjogren^s syndrome [Unknown]
  - Rhinitis allergic [Unknown]
  - Limb asymmetry [Unknown]
  - Arthropathy [Not Recovered/Not Resolved]
  - Fall [Unknown]
  - Fractured coccyx [Unknown]
  - Hernia repair [Unknown]
  - Pneumonia [Unknown]
  - Limb operation [Unknown]
  - Colectomy [Unknown]
  - Tendon sheath incision [Unknown]
  - Obstruction gastric [Unknown]
  - Obstruction gastric [Unknown]
  - Hiatus hernia [Unknown]
  - Bursitis [Not Recovered/Not Resolved]
  - Wrist fracture [Unknown]
  - Radius fracture [Unknown]
  - Fall [Unknown]
  - Lumbar spinal stenosis [Recovering/Resolving]
  - Spondylolisthesis [Unknown]
  - Diarrhoea [Unknown]
  - Back pain [Unknown]
  - Back pain [Not Recovered/Not Resolved]
  - Pain in extremity [Unknown]
